FAERS Safety Report 8925611 (Version 1)
Quarter: 2012Q4

REPORT INFORMATION
  Report Type: 
  Country: GR (occurrence: GR)
  Receive Date: 20121126
  Receipt Date: 20121126
  Transmission Date: 20130627
  Serious: Yes (Death, Life-Threatening)
  Sender: FDA-Public Use
  Company Number: GR-CELGENEUS-066-21660-12103179

PATIENT
  Age: 51 Year
  Sex: Female

DRUGS (1)
  1. ABRAXANE [Suspect]
     Indication: BREAST CANCER
     Dosage: 350mg total dose
     Route: 041
     Dates: start: 20121008, end: 20121008

REACTIONS (1)
  - Febrile neutropenia [Fatal]
